FAERS Safety Report 13361634 (Version 1)
Quarter: 2017Q1

REPORT INFORMATION
  Report Type: Report from Study
  Country: CN (occurrence: CN)
  Receive Date: 20170323
  Receipt Date: 20170323
  Transmission Date: 20170429
  Serious: Yes (Hospitalization)
  Sender: FDA-Public Use
  Company Number: CN-BION-006126

PATIENT
  Age: 27 Year
  Sex: Female

DRUGS (2)
  1. VALPROIC ACID. [Suspect]
     Active Substance: VALPROIC ACID
     Indication: STATUS EPILEPTICUS
     Route: 042
  2. LEVETIRACETAM. [Suspect]
     Active Substance: LEVETIRACETAM
     Indication: EPILEPSY

REACTIONS (5)
  - Lactic acidosis [Unknown]
  - Drug ineffective [Not Recovered/Not Resolved]
  - Maternal exposure during pregnancy [Unknown]
  - Hypoxia [Unknown]
  - Apnoea [Unknown]
